FAERS Safety Report 5510594-0 (Version None)
Quarter: 2007Q4

REPORT INFORMATION
  Report Type: 
  Country: None (occurrence: None)
  Receive Date: 20071107
  Receipt Date: 20071030
  Transmission Date: 20080405
  Serious: Yes (Life-Threatening, Hospitalization)
  Sender: FDA-Public Use
  Company Number: 238001K07USA

PATIENT
  Age: 52 Year
  Sex: Female
  Weight: 109.7705 kg

DRUGS (10)
  1. REBIF [Suspect]
     Indication: MULTIPLE SCLEROSIS
     Dosage: 44 MCG, 3 IN 1 WEEKS, SUBCUTANEOUS, 44 MCG, 3 IN 1 WEEKS, SUBCUTANEOUS
     Route: 058
     Dates: start: 20061103, end: 20070601
  2. REBIF [Suspect]
     Indication: MULTIPLE SCLEROSIS
     Dosage: 44 MCG, 3 IN 1 WEEKS, SUBCUTANEOUS, 44 MCG, 3 IN 1 WEEKS, SUBCUTANEOUS
     Route: 058
     Dates: start: 20070101
  3. NAPROXEN [Suspect]
     Dosage: 500 MG, 2 IN 1 DAYS, ORAL
     Route: 048
     Dates: end: 20070615
  4. LEVOTHYROXINE SODIUM [Concomitant]
  5. DETROL LA [Concomitant]
  6. EFFEXOR XR [Concomitant]
  7. TOPROL-XL [Concomitant]
  8. MIRTAZAPINE [Concomitant]
  9. LITHIUM CARBONATE [Concomitant]
  10. SOLU-MEDROL [Concomitant]

REACTIONS (18)
  - ALANINE AMINOTRANSFERASE INCREASED [None]
  - ANASTOMOTIC ULCER HAEMORRHAGE [None]
  - ASPARTATE AMINOTRANSFERASE INCREASED [None]
  - BLOOD ALBUMIN DECREASED [None]
  - BLOOD ALKALINE PHOSPHATASE INCREASED [None]
  - BLOOD SODIUM INCREASED [None]
  - DIZZINESS [None]
  - ESSENTIAL HYPERTENSION [None]
  - GASTROINTESTINAL FISTULA [None]
  - HAEMATEMESIS [None]
  - HAEMORRHAGIC ANAEMIA [None]
  - HYPERGLYCAEMIA [None]
  - INTERNATIONAL NORMALISED RATIO INCREASED [None]
  - LIPASE INCREASED [None]
  - PEPTIC ULCER [None]
  - PROTHROMBIN TIME PROLONGED [None]
  - URINARY INCONTINENCE [None]
  - URINARY TRACT INFECTION [None]
